FAERS Safety Report 5740996-9 (Version None)
Quarter: 2008Q2

REPORT INFORMATION
  Report Type: 
  Country: None (occurrence: None)
  Receive Date: 20080516
  Receipt Date: 20080506
  Transmission Date: 20081010
  Serious: Yes (Other)
  Sender: FDA-Public Use
  Company Number: US-PFIZER INC-2008037330

PATIENT
  Sex: Female
  Weight: 66.7 kg

DRUGS (3)
  1. CHANTIX [Suspect]
     Indication: SMOKING CESSATION THERAPY
     Route: 048
     Dates: start: 20080301, end: 20080401
  2. REQUIP [Concomitant]
     Indication: RESTLESS LEGS SYNDROME
  3. PREMARIN [Concomitant]
     Indication: HORMONE REPLACEMENT THERAPY

REACTIONS (15)
  - CONFUSIONAL STATE [None]
  - DISSOCIATION [None]
  - DISTURBANCE IN ATTENTION [None]
  - DIZZINESS [None]
  - EMOTIONAL DISORDER [None]
  - GAIT DISTURBANCE [None]
  - ILL-DEFINED DISORDER [None]
  - IMPAIRED DRIVING ABILITY [None]
  - INTENTIONAL DRUG MISUSE [None]
  - OEDEMA PERIPHERAL [None]
  - PAIN [None]
  - RESTLESS LEGS SYNDROME [None]
  - STOMACH DISCOMFORT [None]
  - THINKING ABNORMAL [None]
  - VERTIGO [None]
